FAERS Safety Report 25728023 (Version 1)
Quarter: 2025Q3

REPORT INFORMATION
  Report Type: Spontaneous
  Country: US (occurrence: None)
  Receive Date: 20250826
  Receipt Date: 20250826
  Transmission Date: 20251020
  Serious: Yes (Hospitalization)
  Sender: FDA-CTU
  Company Number: None

PATIENT
  Sex: Male

DRUGS (10)
  1. FENTANYL [Suspect]
     Active Substance: FENTANYL
  2. HYDROMORPHONE [Suspect]
     Active Substance: HYDROMORPHONE
  3. ACETAMINOPHEN\HYDROCODONE [Concomitant]
     Active Substance: ACETAMINOPHEN\HYDROCODONE
  4. OXYCODONE [Concomitant]
     Active Substance: OXYCODONE
  5. PROPOFOL [Concomitant]
     Active Substance: PROPOFOL
  6. FAMOTIDINE [Concomitant]
     Active Substance: FAMOTIDINE
  7. glycophrrolate [Concomitant]
  8. INSULIN NOS [Concomitant]
     Active Substance: INSULIN NOS
  9. LISINOPRIL [Concomitant]
     Active Substance: LISINOPRIL
  10. METFORMIN [Concomitant]
     Active Substance: METFORMIN HYDROCHLORIDE

REACTIONS (3)
  - Fall [None]
  - Musculoskeletal discomfort [None]
  - Musculoskeletal disorder [None]

NARRATIVE: CASE EVENT DATE: 20240304
